FAERS Safety Report 8560199-2 (Version None)
Quarter: 2012Q3

REPORT INFORMATION
  Report Type: 
  Country: None (occurrence: None)
  Receive Date: 20120802
  Receipt Date: 20120723
  Transmission Date: 20120928
  Serious: Yes (Disabling, Other)
  Sender: FDA-Public Use
  Company Number: US-009507513-1207USA008744

PATIENT

DRUGS (1)
  1. NUVARING [Suspect]
     Indication: CONTRACEPTION
     Dosage: UNK
     Dates: start: 20090401

REACTIONS (4)
  - FOETAL PLACENTAL THROMBOSIS [None]
  - THROMBOSIS [None]
  - FOETAL MALNUTRITION [None]
  - MATERNAL EXPOSURE DURING PREGNANCY [None]
